FAERS Safety Report 4725931-4 (Version None)
Quarter: 2005Q3

REPORT INFORMATION
  Report Type: 
  Country: None (occurrence: None)
  Receive Date: 20050722
  Receipt Date: 20050722
  Transmission Date: 20060218
  Serious: Yes (Other)
  Sender: FDA-Public Use
  Company Number: None

PATIENT
  Age: 56 Year
  Sex: Female
  Weight: 82.1011 kg

DRUGS (1)
  1. LEVOTHYROXINE SODIUM [Suspect]
     Indication: BASEDOW'S DISEASE
     Dosage: 150 MCG PO Q DAY
     Route: 048
     Dates: end: 20040909

REACTIONS (3)
  - MUSCLE SPASMS [None]
  - PAIN IN EXTREMITY [None]
  - PHARMACEUTICAL PRODUCT COMPLAINT [None]
